FAERS Safety Report 5264290-8 (Version None)
Quarter: 2007Q1

REPORT INFORMATION
  Report Type: 
  Country: None (occurrence: None)
  Receive Date: 20061213
  Receipt Date: 20050503
  Transmission Date: 20070707
  Serious: Yes (Hospitalization)
  Sender: FDA-Public Use
  Company Number: 2005UW06838

PATIENT
  Age: 70 Year
  Sex: Male
  Weight: 71 kg

DRUGS (7)
  1. IRESSA [Suspect]
     Indication: PROSTATE CANCER
     Dosage: 250 MG QD PO
     Route: 048
     Dates: start: 20050203, end: 20050325
  2. ETOPOSIDE [Suspect]
     Indication: PROSTATE CANCER
     Dosage: 100 MG QD X 2 WEEKS
     Dates: start: 20050203, end: 20050325
  3. AMLODIPINE [Concomitant]
  4. OXYCODONE HCL [Concomitant]
  5. ADVAIR DISKUS 100/50 [Concomitant]
  6. WARFARIN SODIUM [Concomitant]
  7. ALBUTEROL [Concomitant]

REACTIONS (1)
  - DISEASE PROGRESSION [None]
